FAERS Safety Report 26132121 (Version 1)
Quarter: 2025Q4

REPORT INFORMATION
  Report Type: Spontaneous
  Country: EU (occurrence: EU)
  Receive Date: 20251208
  Receipt Date: 20251208
  Transmission Date: 20260117
  Serious: Yes (Other)
  Sender: ASCENDIS PHARMA
  Company Number: EU-ASCENDIS PHARMA-2025EU013092

PATIENT

DRUGS (1)
  1. YORVIPATH [Suspect]
     Active Substance: PALOPEGTERIPARATIDE
     Indication: Post procedural hypoparathyroidism
     Dosage: 24 MICROGRAM, QD (420MCG/1.4ML PEN)
     Route: 058
     Dates: start: 20251006

REACTIONS (4)
  - Hypophosphataemia [Recovered/Resolved]
  - Tetany [Recovered/Resolved]
  - Device malfunction [Unknown]
  - Product dose omission issue [Unknown]

NARRATIVE: CASE EVENT DATE: 20251015
